FAERS Safety Report 7150599-X (Version None)
Quarter: 2010Q4

REPORT INFORMATION
  Report Type: 
  Country: None (occurrence: None)
  Receive Date: 20101210
  Receipt Date: 20101203
  Transmission Date: 20110411
  Serious: Yes (Other)
  Sender: FDA-Public Use
  Company Number: US-PFIZER INC-2010049883

PATIENT
  Age: 58 Year
  Sex: Male
  Weight: 78.5 kg

DRUGS (7)
  1. VIAGRA [Suspect]
     Indication: ERECTILE DYSFUNCTION
     Dosage: UNK
     Dates: start: 20090120
  2. ALLOPURINOL [Concomitant]
     Dosage: UNK
  3. BACLOFEN [Concomitant]
     Dosage: UNK
  4. NORVASC [Concomitant]
     Dosage: UNK
  5. HYZAAR [Concomitant]
     Dosage: UNK
  6. LITHIUM [Concomitant]
     Dosage: UNK
  7. ASPIRIN [Concomitant]

REACTIONS (5)
  - BLINDNESS [None]
  - LENTICULAR OPACITIES [None]
  - PHOTOPSIA [None]
  - RETINAL TEAR [None]
  - VITREOUS FLOATERS [None]
